FAERS Safety Report 26105163 (Version 1)
Quarter: 2025Q4

REPORT INFORMATION
  Report Type: Spontaneous
  Country: JP (occurrence: JP)
  Receive Date: 20251201
  Receipt Date: 20251201
  Transmission Date: 20260118
  Serious: Yes (Other)
  Sender: NOVARTIS
  Company Number: JP-002147023-NVSC2025JP183197

PATIENT
  Age: 83 Year
  Sex: Male

DRUGS (6)
  1. IMATINIB [Suspect]
     Active Substance: IMATINIB
     Indication: Gastrointestinal stromal tumour
     Dosage: UNK
     Route: 065
     Dates: start: 202310
  2. IMATINIB [Suspect]
     Active Substance: IMATINIB
     Indication: Rectal cancer
  3. IMATINIB [Suspect]
     Active Substance: IMATINIB
     Indication: Non-resectable cancer
  4. SUNITINIB [Suspect]
     Active Substance: SUNITINIB
     Indication: Gastrointestinal stromal tumour
     Dosage: 50 MG, QD
     Route: 065
     Dates: start: 202410
  5. SUNITINIB [Suspect]
     Active Substance: SUNITINIB
     Indication: Rectal cancer
     Dosage: 37.5 MG, QD
     Route: 065
  6. SUNITINIB [Suspect]
     Active Substance: SUNITINIB
     Indication: Non-resectable cancer
     Dosage: 25 MG, QD
     Route: 065
     Dates: end: 202503

REACTIONS (4)
  - Hypothyroidism [Unknown]
  - Decreased appetite [Recovering/Resolving]
  - Nausea [Recovering/Resolving]
  - Drug resistance [Unknown]
